FAERS Safety Report 15879201 (Version 2)
Quarter: 2019Q3

REPORT INFORMATION
  Report Type: Spontaneous
  Country: US (occurrence: US)
  Receive Date: 20190128
  Receipt Date: 20190820
  Transmission Date: 20191004
  Serious: No
  Sender: FDA-Public Use
  Company Number: US-MYLANLABS-2019M1003567

PATIENT
  Sex: Female
  Weight: 68 kg

DRUGS (5)
  1. FLUTICASONE. [Concomitant]
     Active Substance: FLUTICASONE
  2. ESTRADIOL TRANSDERMAL SYSTEM [Suspect]
     Active Substance: ESTRADIOL
     Indication: NIGHT SWEATS
  3. XIIDRA [Concomitant]
     Active Substance: LIFITEGRAST
  4. ESTRADIOL TRANSDERMAL SYSTEM [Suspect]
     Active Substance: ESTRADIOL
     Indication: MENOPAUSE
     Dosage: 0.05 MILLIGRAM
     Route: 062
     Dates: start: 20181031, end: 20181215
  5. LATISSE [Concomitant]
     Active Substance: BIMATOPROST

REACTIONS (5)
  - Application site erythema [Unknown]
  - Application site irritation [Unknown]
  - Application site erosion [Unknown]
  - Application site pruritus [Unknown]
  - Application site scar [Not Recovered/Not Resolved]

NARRATIVE: CASE EVENT DATE: 2018
